FAERS Safety Report 25350598 (Version 1)
Quarter: 2025Q2

REPORT INFORMATION
  Report Type: Spontaneous
  Country: KR (occurrence: KR)
  Receive Date: 20250523
  Receipt Date: 20250523
  Transmission Date: 20250717
  Serious: Yes (Hospitalization, Other)
  Sender: IPCA
  Company Number: KR-IPCA LABORATORIES LIMITED-IPC-2025-KR-001357

PATIENT

DRUGS (1)
  1. WARFARIN SODIUM [Suspect]
     Active Substance: WARFARIN SODIUM
     Indication: Mitral valve stenosis
     Route: 065

REACTIONS (4)
  - Haematoma [Recovered/Resolved]
  - Anaemia [Recovered/Resolved]
  - Neuropathy peripheral [Recovered/Resolved]
  - International normalised ratio increased [Recovered/Resolved]
